FAERS Safety Report 15977327 (Version 1)
Quarter: 2019Q1

REPORT INFORMATION
  Report Type: Spontaneous
  Country: US (occurrence: US)
  Receive Date: 20190218
  Receipt Date: 20190218
  Transmission Date: 20190418
  Serious: No
  Sender: FDA-Public Use
  Company Number: US-SUNOVION-2019SUN000651

PATIENT
  Sex: Male

DRUGS (3)
  1. APTIOM [Suspect]
     Active Substance: ESLICARBAZEPINE ACETATE
     Dosage: 800 MG, QD
     Route: 048
  2. APTIOM [Suspect]
     Active Substance: ESLICARBAZEPINE ACETATE
     Indication: SEIZURE
     Dosage: 400 MG, QD
     Route: 048
  3. DILATIN [Concomitant]
     Dosage: UNK
     Route: 065

REACTIONS (6)
  - Oral surgery [Unknown]
  - Balance disorder [Unknown]
  - Pain in jaw [Unknown]
  - Swelling face [Unknown]
  - Hallucination [Unknown]
  - Dizziness [Unknown]
